FAERS Safety Report 6075177-5 (Version None)
Quarter: 2009Q1

REPORT INFORMATION
  Report Type: 
  Country: None (occurrence: None)
  Receive Date: 20090212
  Receipt Date: 20090130
  Transmission Date: 20090719
  Serious: Yes (Other)
  Sender: FDA-Public Use
  Company Number: FR-TYCO HEALTHCARE/MALLINCKRODT-T200900057

PATIENT

DRUGS (6)
  1. OPTIJECT [Suspect]
     Indication: SCAN
     Dosage: UNK
     Route: 042
     Dates: start: 20080911, end: 20080911
  2. RITUXIMAB [Suspect]
     Indication: NON-HODGKIN'S LYMPHOMA
     Dosage: UNK
  3. DOXORUBICIN HCL [Suspect]
     Indication: NON-HODGKIN'S LYMPHOMA
     Dosage: UNK
  4. CYCLOPHOSPHAMIDE [Suspect]
     Indication: NON-HODGKIN'S LYMPHOMA
     Dosage: UNK
  5. VINCRISTINE [Suspect]
     Indication: NON-HODGKIN'S LYMPHOMA
     Dosage: UNK
  6. PREDNISONE [Concomitant]
     Indication: NON-HODGKIN'S LYMPHOMA

REACTIONS (2)
  - GRANULOMA [None]
  - RASH [None]
